FAERS Safety Report 25436268 (Version 1)
Quarter: 2025Q2

REPORT INFORMATION
  Report Type: Spontaneous
  Country: AU (occurrence: AU)
  Receive Date: 20250614
  Receipt Date: 20250614
  Transmission Date: 20250717
  Serious: Yes (Life-Threatening, Hospitalization, Other)
  Sender: MACLEODS
  Company Number: AU-MACLEODS PHARMA-MAC2021030739

PATIENT

DRUGS (10)
  1. PREGABALIN [Suspect]
     Active Substance: PREGABALIN
     Indication: Pain
     Dosage: 75 MG, BID
     Route: 065
  2. TAPENTADOL [Suspect]
     Active Substance: TAPENTADOL
     Indication: Product used for unknown indication
     Dosage: 200 MG, BID
     Route: 065
  3. TAPENTADOL [Suspect]
     Active Substance: TAPENTADOL
     Dosage: 50 MG, BID
     Route: 065
  4. ASPIRIN [Concomitant]
     Active Substance: ASPIRIN
     Indication: Product used for unknown indication
     Dosage: 100 MG, QD
     Route: 065
  5. PROPRANOLOL [Concomitant]
     Active Substance: PROPRANOLOL HYDROCHLORIDE
     Indication: Product used for unknown indication
     Dosage: 40 MG, QD
     Route: 065
  6. DULOXETINE [Concomitant]
     Active Substance: DULOXETINE
     Indication: Product used for unknown indication
     Dosage: 30 MG, QD
     Route: 065
  7. AMITRIPTYLINE [Concomitant]
     Active Substance: AMITRIPTYLINE
     Indication: Product used for unknown indication
     Dosage: 50 MG, QD
     Route: 065
  8. FUROSEMIDE [Concomitant]
     Active Substance: FUROSEMIDE
     Indication: Product used for unknown indication
     Dosage: 20 MG, QD
     Route: 065
  9. Amiloride/HCT [Concomitant]
     Indication: Product used for unknown indication
     Dosage: 5/12.5 MG, DAILY
     Route: 065
  10. Elitriptan [Concomitant]
     Route: 065

REACTIONS (3)
  - Status epilepticus [Recovered/Resolved]
  - Neurotoxicity [Unknown]
  - Encephalopathy [Recovered/Resolved]
